FAERS Safety Report 7646719-0 (Version None)
Quarter: 2011Q3

REPORT INFORMATION
  Report Type: 
  Country: None (occurrence: None)
  Receive Date: 20110801
  Receipt Date: 20110720
  Transmission Date: 20111222
  Serious: Yes (Other)
  Sender: FDA-Public Use
  Company Number: ZA-NOVOPROD-332625

PATIENT
  Age: 66 Year
  Sex: Male
  Weight: 104 kg

DRUGS (1)
  1. LEVEMIR [Suspect]
     Indication: TYPE 2 DIABETES MELLITUS
     Dosage: 40 IU, QD
     Route: 065
     Dates: start: 20110701, end: 20110720

REACTIONS (4)
  - INJECTION SITE PRURITUS [None]
  - MASS [None]
  - RASH [None]
  - INJECTION SITE MASS [None]
